FAERS Safety Report 9311424 (Version 1)
Quarter: 2013Q2

REPORT INFORMATION
  Report Type: Spontaneous
  Country: US (occurrence: US)
  Receive Date: 20130528
  Receipt Date: 20130528
  Transmission Date: 20140414
  Serious: No
  Sender: FDA-Public Use
  Company Number: US-PFIZER INC-2013162277

PATIENT
  Age: 58 Year
  Sex: Male

DRUGS (5)
  1. LYRICA [Suspect]
     Indication: MYALGIA
     Dosage: UNK, 2X/DAY
     Route: 048
     Dates: start: 201305
  2. VICODIN [Concomitant]
  3. OXAZEPAM [Concomitant]
  4. CELEXA [Concomitant]
  5. LISINOPRIL [Concomitant]

REACTIONS (1)
  - Somnolence [Unknown]
